FAERS Safety Report 7954461-1 (Version None)
Quarter: 2011Q4

REPORT INFORMATION
  Report Type: 
  Country: None (occurrence: None)
  Receive Date: 20111202
  Receipt Date: 20111124
  Transmission Date: 20120403
  Serious: Yes (Disabling, Other)
  Sender: FDA-Public Use
  Company Number: GB-ABBOTT-11P-167-0863817-00

PATIENT
  Sex: Female

DRUGS (6)
  1. HUMIRA [Suspect]
     Indication: PRODUCT USED FOR UNKNOWN INDICATION
     Dates: start: 20090101, end: 20090501
  2. METHOTREXATE [Concomitant]
     Dates: start: 20100301
  3. HUMIRA [Suspect]
  4. METHOTREXATE [Concomitant]
     Dates: start: 20111101
  5. HUMIRA [Suspect]
     Dates: start: 20110701
  6. METHOTREXATE [Concomitant]
     Indication: PRODUCT USED FOR UNKNOWN INDICATION
     Dates: start: 20090701, end: 20100101

REACTIONS (7)
  - RASH [None]
  - ARTHRALGIA [None]
  - PSORIASIS [None]
  - DERMATITIS PSORIASIFORM [None]
  - INFECTION [None]
  - ALOPECIA [None]
  - MALAISE [None]
